FAERS Safety Report 7117368-8 (Version None)
Quarter: 2010Q4

REPORT INFORMATION
  Report Type: 
  Country: None (occurrence: None)
  Receive Date: 20101122
  Receipt Date: 20101108
  Transmission Date: 20110411
  Serious: Yes (Other)
  Sender: FDA-Public Use
  Company Number: CA-PURDUE-USA-2010-0051038

PATIENT
  Age: 79 Year
  Sex: Male

DRUGS (1)
  1. TRAMADOL HCL [Suspect]
     Indication: ARTHRALGIA
     Dosage: 100 MG, UNK
     Route: 048

REACTIONS (3)
  - DIZZINESS [None]
  - HYPOKINESIA [None]
  - SEDATION [None]
